FAERS Safety Report 10544152 (Version 2)
Quarter: 2014Q4

REPORT INFORMATION
  Report Type: Report from Study
  Country: US (occurrence: US)
  Receive Date: 20141027
  Receipt Date: 20141027
  Transmission Date: 20150529
  Serious: Yes (Death, Hospitalization)
  Sender: FDA-Public Use
  Company Number: PHEH2014US007071

PATIENT
  Age: 25 Year
  Sex: Female

DRUGS (1)
  1. TOBI PODHALER [Suspect]
     Active Substance: TOBRAMYCIN
     Indication: CYSTIC FIBROSIS
     Dosage: TWICE A DAY
     Route: 055
     Dates: start: 20130701

REACTIONS (5)
  - No therapeutic response [Unknown]
  - Dry throat [Unknown]
  - Forced expiratory volume decreased [Unknown]
  - Death [Fatal]
  - Cough [Unknown]

NARRATIVE: CASE EVENT DATE: 20130701
